FAERS Safety Report 6221947-X (Version None)
Quarter: 2009Q2

REPORT INFORMATION
  Report Type: 
  Country: None (occurrence: None)
  Receive Date: 20090611
  Receipt Date: 20090528
  Transmission Date: 20091009
  Serious: Yes (Other)
  Sender: FDA-Public Use
  Company Number: JP-RANBAXY-2009RR-24594

PATIENT
  Age: 47 Year
  Sex: Male

DRUGS (2)
  1. FENOFIBRATE [Suspect]
     Indication: HYPERLIPIDAEMIA
     Route: 048
  2. BEZAFIBRATE [Concomitant]
     Indication: DRUG USE FOR UNKNOWN INDICATION

REACTIONS (1)
  - GAMMA-GLUTAMYLTRANSFERASE INCREASED [None]
